FAERS Safety Report 20733845 (Version 1)
Quarter: 2022Q2

REPORT INFORMATION
  Report Type: Other
  Country: DE (occurrence: None)
  Receive Date: 20220421
  Receipt Date: 20220421
  Transmission Date: 20220720
  Serious: Yes (Other)
  Sender: FDA-Public Use
  Company Number: DE-ROCHE-2499252

PATIENT
  Age: 48 Year
  Sex: Female

DRUGS (11)
  1. OCREVUS [Suspect]
     Active Substance: OCRELIZUMAB
     Indication: Relapsing-remitting multiple sclerosis
     Route: 042
     Dates: start: 20191122
  2. OCREVUS [Suspect]
     Active Substance: OCRELIZUMAB
     Route: 042
     Dates: start: 20191206
  3. OCREVUS [Suspect]
     Active Substance: OCRELIZUMAB
     Route: 042
     Dates: start: 20200507
  4. OCREVUS [Suspect]
     Active Substance: OCRELIZUMAB
     Route: 042
     Dates: start: 20210409
  5. TIZANIDINE [Concomitant]
     Active Substance: TIZANIDINE
  6. TILIDINE [Concomitant]
     Active Substance: TILIDINE
     Dosage: 0-0-1
  7. ACETAMINOPHEN [Concomitant]
     Active Substance: ACETAMINOPHEN
  8. SPIRIVA [Concomitant]
     Active Substance: TIOTROPIUM BROMIDE MONOHYDRATE
  9. BECLOMETHASONE DIPROPIONATE [Concomitant]
     Active Substance: BECLOMETHASONE DIPROPIONATE
     Dosage: 1-0-0
  10. SPIRIVA [Concomitant]
     Active Substance: TIOTROPIUM BROMIDE MONOHYDRATE
  11. BECLOMETHASONE [Concomitant]
     Active Substance: BECLOMETHASONE

REACTIONS (13)
  - Deafness unilateral [Recovering/Resolving]
  - Blood pressure increased [Recovered/Resolved]
  - Heart rate increased [Recovered/Resolved]
  - Fatigue [Recovered/Resolved]
  - Myalgia [Recovering/Resolving]
  - Seasonal allergy [Recovered/Resolved]
  - Back pain [Not Recovered/Not Resolved]
  - Deafness [Recovering/Resolving]
  - Listless [Unknown]
  - Asthenia [Unknown]
  - Sleep disorder [Unknown]
  - Initial insomnia [Not Recovered/Not Resolved]
  - COVID-19 [Recovered/Resolved]

NARRATIVE: CASE EVENT DATE: 20191122
